FAERS Safety Report 17435184 (Version 1)
Quarter: 2020Q1

REPORT INFORMATION
  Report Type: Spontaneous
  Country: US (occurrence: US)
  Receive Date: 20200204
  Receipt Date: 20200204
  Transmission Date: 20200409
  Serious: Yes (Hospitalization)
  Sender: FDA-Public Use
  Company Number: None

PATIENT
  Sex: Female

DRUGS (1)
  1. IBRANCE [Suspect]
     Active Substance: PALBOCICLIB
     Indication: MALIGNANT RESPIRATORY TRACT NEOPLASM
     Dosage: SEE PAGE 2 B6
     Dates: start: 20190814

REACTIONS (2)
  - Hip surgery [None]
  - Therapy cessation [None]
